FAERS Safety Report 10509109 (Version 1)
Quarter: 2014Q3

REPORT INFORMATION
  Report Type: Spontaneous
  Country: US (occurrence: None)
  Receive Date: 20140915
  Receipt Date: 20140915
  Transmission Date: 20150326
  Serious: Yes (Other)
  Sender: FDA-Public Use
  Company Number: 2014-US-002799

PATIENT
  Age: 37 Year
  Sex: Female
  Weight: 86.2 kg

DRUGS (9)
  1. WELLBUTRIN [Concomitant]
     Active Substance: BUPROPION HYDROCHLORIDE
  2. XYREM [Suspect]
     Active Substance: SODIUM OXYBATE
     Indication: SLEEP DISORDER
     Dates: start: 20140114, end: 2014
  3. XYREM [Suspect]
     Active Substance: SODIUM OXYBATE
     Indication: FIBROMYALGIA
     Dates: start: 20140114, end: 2014
  4. TIZANIDINE (TIZANIDINE HYDROCHLORIDE) [Suspect]
     Active Substance: TIZANIDINE HYDROCHLORIDE
     Indication: PRODUCT USED FOR UNKNOWN INDICATION
  5. OMEPRAZOLE (OMEPRAZOLE MAGNESIUM) [Concomitant]
  6. TROKENDI (TOPIRAMATE) [Concomitant]
  7. DULOXETINE (DULOXETINE) [Concomitant]
  8. HYDROCODONE (HYDROCODONE BITARTRATE) [Suspect]
     Active Substance: HYDROCODONE BITARTRATE
     Indication: PRODUCT USED FOR UNKNOWN INDICATION
  9. LOESTRIN (ETHINYLESTRADIOL, NORETHINDRONE ACETATE) [Concomitant]

REACTIONS (9)
  - Fatigue [None]
  - Somnolence [None]
  - Abnormal dreams [None]
  - Migraine [None]
  - Anxiety [None]
  - Depression [None]
  - Emotional disorder [None]
  - Appetite disorder [None]
  - Off label use [None]

NARRATIVE: CASE EVENT DATE: 201402
